FAERS Safety Report 12956800 (Version 2)
Quarter: 2016Q4

REPORT INFORMATION
  Report Type: Report from Study
  Country: US (occurrence: US)
  Receive Date: 20161119
  Receipt Date: 20161201
  Transmission Date: 20170207
  Serious: No
  Sender: FDA-Public Use
  Company Number: US-AMGEN-USASL2016163289

PATIENT
  Age: 64 Year
  Sex: Female

DRUGS (1)
  1. ENBREL [Suspect]
     Active Substance: ETANERCEPT
     Indication: PSORIATIC ARTHROPATHY
     Dosage: 50 MG, QWK
     Route: 065
     Dates: start: 201602

REACTIONS (4)
  - Injection site pain [Recovered/Resolved]
  - Refusal of treatment by patient [Unknown]
  - Wrong technique in product usage process [Unknown]
  - Underdose [Unknown]

NARRATIVE: CASE EVENT DATE: 2016
